FAERS Safety Report 10249093 (Version 1)
Quarter: 2014Q2

REPORT INFORMATION
  Report Type: Spontaneous
  Country: US (occurrence: US)
  Receive Date: 20140620
  Receipt Date: 20140620
  Transmission Date: 20141212
  Serious: Yes (Other)
  Sender: FDA-Public Use
  Company Number: US-JNJFOC-20140605152

PATIENT
  Sex: Male
  Weight: 68.95 kg

DRUGS (8)
  1. CONCERTA [Suspect]
     Indication: ANTIDEPRESSANT THERAPY
     Route: 048
     Dates: end: 2014
  2. CONCERTA [Suspect]
     Indication: ANTIDEPRESSANT THERAPY
     Route: 048
     Dates: start: 20140603
  3. CONCERTA [Suspect]
     Indication: ANTIDEPRESSANT THERAPY
     Route: 048
     Dates: start: 2014, end: 2014
  4. CONCERTA [Suspect]
     Indication: ANTIDEPRESSANT THERAPY
     Route: 048
     Dates: start: 2014, end: 2014
  5. CLONAZEPAM [Concomitant]
     Indication: PRODUCT USED FOR UNKNOWN INDICATION
     Route: 065
  6. CYMBALTA [Concomitant]
     Indication: DEPRESSION
     Route: 065
  7. CYMBALTA [Concomitant]
     Indication: DEPRESSION
     Route: 065
  8. SYNTHROID [Concomitant]
     Indication: THYROID DISORDER
     Route: 048

REACTIONS (8)
  - Thyroid neoplasm [Recovered/Resolved]
  - Off label use [Not Recovered/Not Resolved]
  - Nervousness [Recovering/Resolving]
  - Tremor [Recovering/Resolving]
  - Anxiety [Not Recovered/Not Resolved]
  - Insomnia [Not Recovered/Not Resolved]
  - Fatigue [Not Recovered/Not Resolved]
  - Apathy [Not Recovered/Not Resolved]
